FAERS Safety Report 13527214 (Version 1)
Quarter: 2017Q2

REPORT INFORMATION
  Report Type: Spontaneous
  Country: US (occurrence: US)
  Receive Date: 20170509
  Receipt Date: 20170509
  Transmission Date: 20170830
  Serious: No
  Sender: FDA-Public Use
  Company Number: US-ASTRAZENECA-2017SE48077

PATIENT
  Age: 21618 Day
  Sex: Male
  Weight: 99.8 kg

DRUGS (2)
  1. BYDUREON [Suspect]
     Active Substance: EXENATIDE
     Indication: TYPE 2 DIABETES MELLITUS
     Route: 058
     Dates: start: 20170503
  2. INSULIN [Concomitant]
     Active Substance: INSULIN NOS

REACTIONS (11)
  - Palpitations [Recovered/Resolved]
  - Dysarthria [Recovering/Resolving]
  - Hyperhidrosis [Recovering/Resolving]
  - Blood pressure decreased [Unknown]
  - Product solubility abnormal [Unknown]
  - Feeling jittery [Recovering/Resolving]
  - Nervousness [Recovering/Resolving]
  - Dizziness [Not Recovered/Not Resolved]
  - Headache [Recovering/Resolving]
  - Tremor [Recovering/Resolving]
  - Asthenia [Recovering/Resolving]

NARRATIVE: CASE EVENT DATE: 20170503
